FAERS Safety Report 6394682-5 (Version None)
Quarter: 2009Q4

REPORT INFORMATION
  Report Type: 
  Country: None (occurrence: None)
  Receive Date: 20091009
  Receipt Date: 20090929
  Transmission Date: 20100525
  Serious: Yes (Other)
  Sender: FDA-Public Use
  Company Number: ES-JNJFOC-20091001524

PATIENT
  Age: 44 Year
  Sex: Male

DRUGS (4)
  1. REOPRO [Suspect]
     Indication: ACUTE MYOCARDIAL INFARCTION
     Route: 042
  2. HEPARIN [Concomitant]
     Indication: ACUTE MYOCARDIAL INFARCTION
  3. IODIXANOL [Concomitant]
     Indication: PERCUTANEOUS CORONARY INTERVENTION
  4. TROMETAMOL [Concomitant]
     Indication: PERCUTANEOUS CORONARY INTERVENTION

REACTIONS (3)
  - CONJUNCTIVAL HAEMORRHAGE [None]
  - PULMONARY CONGESTION [None]
  - THROMBOCYTOPENIA [None]
